FAERS Safety Report 11101935 (Version 2)
Quarter: 2015Q2

REPORT INFORMATION
  Report Type: Spontaneous
  Country: US (occurrence: US)
  Receive Date: 20150510
  Receipt Date: 20150512
  Transmission Date: 20150821
  Serious: No
  Sender: FDA-Public Use
  Company Number: US-009507513-1504USA024480

PATIENT
  Age: 60 Year
  Sex: Female

DRUGS (1)
  1. BELSOMRA [Suspect]
     Active Substance: SUVOREXANT
     Indication: INSOMNIA
     Dosage: 15 MG, ONCE DAILY, AT NIGHT
     Route: 048
     Dates: start: 20150428

REACTIONS (3)
  - Anxiety [Unknown]
  - Chest discomfort [Unknown]
  - Pulse abnormal [Unknown]

NARRATIVE: CASE EVENT DATE: 20150428
